FAERS Safety Report 25809361 (Version 1)
Quarter: 2025Q3

REPORT INFORMATION
  Report Type: Spontaneous
  Country: US (occurrence: US)
  Receive Date: 20250916
  Receipt Date: 20250916
  Transmission Date: 20251020
  Serious: No
  Sender: SANOFI AVENTIS
  Company Number: US-SA-2025SA274090

PATIENT
  Age: 32 Year
  Sex: Female

DRUGS (4)
  1. DUPIXENT [Suspect]
     Active Substance: DUPILUMAB
     Indication: Chronic sinusitis
     Route: 058
     Dates: start: 20250403
  2. DUPIXENT [Suspect]
     Active Substance: DUPILUMAB
     Indication: Rhinitis
  3. KYLEENA [Concomitant]
     Active Substance: LEVONORGESTREL
  4. WELLBUTRIN [Concomitant]
     Active Substance: BUPROPION HYDROCHLORIDE

REACTIONS (1)
  - Hidradenitis [Unknown]

NARRATIVE: CASE EVENT DATE: 20250910
